FAERS Safety Report 6700056-7 (Version None)
Quarter: 2010Q2

REPORT INFORMATION
  Report Type: 
  Country: None (occurrence: None)
  Receive Date: 20100428
  Receipt Date: 20100416
  Transmission Date: 20101027
  Serious: Yes (Other)
  Sender: FDA-Public Use
  Company Number: US-SOLVAY-00210002324

PATIENT
  Age: 46 Year
  Sex: Male
  Weight: 129.54 kg

DRUGS (4)
  1. ANDROGEL [Suspect]
     Indication: BLOOD TESTOSTERONE DECREASED
     Dosage: DAILY DOSE: 5 GRAM(S), VIA PUMP
     Route: 062
     Dates: start: 20091001, end: 20091201
  2. WELLBUTRIN [Concomitant]
     Indication: DRUG USE FOR UNKNOWN INDICATION
     Dosage: DAILY DOSE:  UNKNOWN
     Route: 048
  3. HYDROCODONE BITARTRATE [Concomitant]
     Indication: PAIN
     Dosage: DAILY DOSE:  UNKNOWN, FREQUENCY: AS NEEDED
     Route: 048
  4. DILAUDID [Concomitant]
     Indication: PAIN
     Dosage: DAILY DOSE:  UNKNOWN
     Route: 037
     Dates: start: 20091101

REACTIONS (1)
  - DEEP VEIN THROMBOSIS [None]
